FAERS Safety Report 10076181 (Version 1)
Quarter: 2014Q2

REPORT INFORMATION
  Report Type: Spontaneous
  Country: US (occurrence: None)
  Receive Date: 20140410
  Receipt Date: 20140410
  Transmission Date: 20141212
  Serious: Yes (Hospitalization)
  Sender: FDA-Public Use
  Company Number: UTC-045880

PATIENT
  Age: 73 Year
  Sex: Female
  Weight: 114.3 kg

DRUGS (2)
  1. TYVASO (0.6 MILLIGRAM/MILLILITERS, AEROSOL FOR INHALATION) (TREPROSTINIL SODIUM) [Suspect]
     Indication: PULMONARY ARTERIAL HYPERTENSION
     Route: 055
     Dates: start: 20120910
  2. REVATIO (SILDENAFIL CITRATE) [Concomitant]

REACTIONS (1)
  - Gallbladder perforation [None]
